FAERS Safety Report 7432153-5 (Version None)
Quarter: 2011Q2

REPORT INFORMATION
  Report Type: 
  Country: None (occurrence: None)
  Receive Date: 20110414
  Receipt Date: 20110405
  Transmission Date: 20111010
  Serious: Yes (Death)
  Sender: FDA-Public Use
  Company Number: UTC-006149

PATIENT
  Age: 44 Year
  Sex: Female

DRUGS (2)
  1. REMODULIN [Suspect]
     Dosage: 17.28 UG/KG (0.012 UG/KG, 1 IN 1 MIN), SUBCUTANEOUS
     Route: 058
     Dates: start: 20100401
  2. REVATIO [Concomitant]

REACTIONS (1)
  - DEATH [None]
